FAERS Safety Report 8565334-8 (Version None)
Quarter: 2012Q3

REPORT INFORMATION
  Report Type: 
  Country: None (occurrence: None)
  Receive Date: 20120803
  Receipt Date: 20120723
  Transmission Date: 20120928
  Serious: Yes (Other)
  Sender: FDA-Public Use
  Company Number: AR-ROCHE-1094077

PATIENT
  Sex: Female

DRUGS (2)
  1. LUCENTIS [Suspect]
     Indication: MACULAR DEGENERATION
     Route: 050
     Dates: start: 20100101
  2. LUCENTIS [Suspect]
     Route: 050
     Dates: start: 20110201, end: 20110201

REACTIONS (4)
  - EAR DISORDER [None]
  - VISUAL ACUITY REDUCED [None]
  - DEAFNESS [None]
  - VISUAL IMPAIRMENT [None]
